FAERS Safety Report 4351640-X (Version None)
Quarter: 2004Q2

REPORT INFORMATION
  Report Type: 
  Country: None (occurrence: None)
  Receive Date: 20040503
  Receipt Date: 20040419
  Transmission Date: 20050107
  Serious: Yes (Other)
  Sender: FDA-Public Use
  Company Number: SE-BRISTOL-MYERS SQUIBB COMPANY-12576377

PATIENT
  Age: 60 Year
  Sex: Female

DRUGS (7)
  1. SENDOXAN [Suspect]
     Indication: HODGKIN'S DISEASE
     Dosage: THERAPY DATES 22-DEC-2000 TO 10-JUN-2001
     Route: 042
     Dates: start: 20010610, end: 20040610
  2. BLEOMYCIN [Suspect]
     Indication: HODGKIN'S DISEASE
     Route: 042
  3. ETOPOSIDE [Suspect]
     Indication: HODGKIN'S DISEASE
     Route: 042
  4. DOXORUBICIN HCL [Suspect]
     Indication: HODGKIN'S DISEASE
     Route: 042
  5. VINCRISTINE [Suspect]
     Indication: HODGKIN'S DISEASE
     Route: 042
  6. PROCARBAZINE [Suspect]
     Indication: HODGKIN'S DISEASE
     Route: 042
  7. PREDNISONE [Suspect]
     Indication: HODGKIN'S DISEASE
     Route: 042

REACTIONS (6)
  - BRADYCARDIA [None]
  - CARDIAC FIBRILLATION [None]
  - HEARING IMPAIRED [None]
  - HYPOTENSION [None]
  - OTOTOXICITY [None]
  - TINNITUS [None]
